FAERS Safety Report 25744870 (Version 1)
Quarter: 2025Q3

REPORT INFORMATION
  Report Type: Spontaneous
  Country: US (occurrence: US)
  Receive Date: 20250901
  Receipt Date: 20250901
  Transmission Date: 20251021
  Serious: Yes (Other)
  Sender: UCB
  Company Number: US-UCBSA-2025052756

PATIENT
  Age: 41 Year
  Sex: Female

DRUGS (3)
  1. BIMZELX [Suspect]
     Active Substance: BIMEKIZUMAB-BKZX
     Indication: Hidradenitis
     Dosage: 320 MILLIGRAM, EV 2 WEEKS(QOW)
     Route: 058
     Dates: start: 202506
  2. BIMZELX [Suspect]
     Active Substance: BIMEKIZUMAB-BKZX
     Indication: Ankylosing spondylitis
  3. TALTZ [Concomitant]
     Active Substance: IXEKIZUMAB
     Indication: Product used for unknown indication

REACTIONS (4)
  - Ankylosing spondylitis [Unknown]
  - Hidradenitis [Unknown]
  - Condition aggravated [Unknown]
  - Incorrect dose administered [Unknown]

NARRATIVE: CASE EVENT DATE: 20250601
